FAERS Safety Report 15090629 (Version 1)
Quarter: 2018Q2

REPORT INFORMATION
  Report Type: Spontaneous
  Country: IT (occurrence: IT)
  Receive Date: 20180629
  Receipt Date: 20180629
  Transmission Date: 20180711
  Serious: Yes (Other)
  Sender: FDA-Public Use
  Company Number: IT-TEVA-2018-IT-917217

PATIENT
  Age: 47 Year
  Sex: Female

DRUGS (2)
  1. OXALIPLATIN. [Suspect]
     Active Substance: OXALIPLATIN
     Indication: OVARIAN CANCER
     Route: 065
     Dates: start: 20170120, end: 20170403
  2. CAPECITABINE. [Concomitant]
     Active Substance: CAPECITABINE
     Dosage: 2500 MILLIGRAM DAILY;

REACTIONS (2)
  - Dysaesthesia [Recovered/Resolved]
  - Paraesthesia [Recovered/Resolved]

NARRATIVE: CASE EVENT DATE: 20170403
